FAERS Safety Report 8378617-1 (Version None)
Quarter: 2012Q2

REPORT INFORMATION
  Report Type: 
  Country: None (occurrence: None)
  Receive Date: 20120522
  Receipt Date: 20111121
  Transmission Date: 20120825
  Serious: No
  Sender: FDA-Public Use
  Company Number: US-ASTRAZENECA-2011SE70975

PATIENT
  Age: 52 Year
  Sex: Female

DRUGS (2)
  1. NEXIUM [Concomitant]
  2. OMEPRAZOLE [Suspect]
     Route: 048

REACTIONS (2)
  - ABDOMINAL DISCOMFORT [None]
  - DRUG EFFECT DECREASED [None]
